FAERS Safety Report 22374178 (Version 2)
Quarter: 2023Q2

REPORT INFORMATION
  Report Type: Report from Study
  Country: CA (occurrence: CA)
  Receive Date: 20230526
  Receipt Date: 20230619
  Transmission Date: 20230722
  Serious: Yes (Other)
  Sender: FDA-Public Use
  Company Number: CA-HLS-202301089

PATIENT
  Age: 23 Year
  Sex: Male
  Weight: 93 kg

DRUGS (2)
  1. CLOZARIL [Suspect]
     Active Substance: CLOZAPINE
     Indication: Product used for unknown indication
     Dosage: 200MG PO QHS; STARTED [ILLEGIBLE] IN HOSPITAL SOMETIME BETWEEN AUGUST 2020 AND MAY 2021 (REPORTED AS
     Route: 048
     Dates: start: 20200922
  2. LITHIUM [Concomitant]
     Active Substance: LITHIUM
     Indication: Product used for unknown indication
     Dosage: 750MG; STARTED IN HOSPITAL SOMETIME BETWEEN JANUARY TO APRIL 2018
     Route: 048
     Dates: start: 2018

REACTIONS (9)
  - Alanine aminotransferase increased [Unknown]
  - Blood albumin increased [Unknown]
  - C-reactive protein increased [Unknown]
  - Gamma-glutamyltransferase increased [Unknown]
  - Defect conduction intraventricular [Unknown]
  - Antipsychotic drug level below therapeutic [Not Recovered/Not Resolved]
  - Electrocardiogram QRS complex prolonged [Unknown]
  - Red blood cell count increased [Not Recovered/Not Resolved]
  - Red blood cell count increased [Recovered/Resolved]

NARRATIVE: CASE EVENT DATE: 20220926
